FAERS Safety Report 20036152 (Version 1)
Quarter: 2021Q4

REPORT INFORMATION
  Report Type: Report from Study
  Country: IT (occurrence: IT)
  Receive Date: 20211105
  Receipt Date: 20211105
  Transmission Date: 20220303
  Serious: Yes (Other)
  Sender: FDA-Public Use
  Company Number: IT-MINISAL02-803951

PATIENT
  Age: 81 Year
  Sex: Female

DRUGS (1)
  1. TROPICAMIDE [Suspect]
     Active Substance: TROPICAMIDE
     Indication: Product used for unknown indication
     Route: 047
     Dates: start: 20210923, end: 20210923

REACTIONS (1)
  - Rash [Recovered/Resolved]

NARRATIVE: CASE EVENT DATE: 20210923
